FAERS Safety Report 4335584-5 (Version None)
Quarter: 2004Q2

REPORT INFORMATION
  Report Type: 
  Country: None (occurrence: None)
  Receive Date: 20040409
  Receipt Date: 20040405
  Transmission Date: 20050107
  Serious: Yes (Other)
  Sender: FDA-Public Use
  Company Number: US-MERCK-0404USA00260

PATIENT
  Age: 56 Year
  Sex: Female
  Weight: 87 kg

DRUGS (11)
  1. CELEBREX [Concomitant]
     Route: 065
  2. ZETIA [Suspect]
     Indication: HYPERLIPIDAEMIA
     Route: 048
     Dates: start: 20031118, end: 20031223
  3. AMARYL [Concomitant]
     Route: 065
  4. HYDRODIURIL [Concomitant]
     Route: 048
  5. AVALIDE [Concomitant]
     Route: 065
  6. PROTONIX [Concomitant]
     Route: 065
  7. PRAVACHOL [Concomitant]
     Route: 065
  8. ACTONEL [Concomitant]
     Route: 065
  9. TRAZODONE HYDROCHLORIDE [Concomitant]
     Route: 065
  10. EFFEXOR XR [Concomitant]
     Route: 065
  11. AMBIEN [Concomitant]
     Route: 065

REACTIONS (3)
  - DRUG ERUPTION [None]
  - PRURITUS [None]
  - RASH MACULO-PAPULAR [None]
